FAERS Safety Report 18138204 (Version 1)
Quarter: 2020Q3

REPORT INFORMATION
  Report Type: Spontaneous
  Country: DK (occurrence: DK)
  Receive Date: 20200812
  Receipt Date: 20200812
  Transmission Date: 20201103
  Serious: Yes (Other)
  Sender: FDA-Public Use
  Company Number: DK-TERSERA THERAPEUTICS LLC-2020TRS002314

PATIENT

DRUGS (5)
  1. AMITRIPTYLINE [Concomitant]
     Active Substance: AMITRIPTYLINE
     Indication: ANXIETY
     Dosage: STRENGTH: 25 MG.
     Route: 048
     Dates: start: 20150304
  2. PANODIL [Concomitant]
     Active Substance: ACETAMINOPHEN
     Indication: PAIN
     Dosage: STRENGTH: 665 MG.
     Route: 048
     Dates: start: 20141027
  3. SIRDALUD RETARD [Concomitant]
     Indication: MUSCLE RELAXANT THERAPY
     Dosage: STRENGTH: 6 MG, QD
     Route: 048
     Dates: start: 20180316
  4. ZOLADEX [Suspect]
     Active Substance: GOSERELIN ACETATE
     Indication: ENDOMETRIOSIS
     Dosage: STRENGTH: 10.8 MG.10.8MG ONCE/SINGLE ADMINISTRATION
     Route: 058
     Dates: start: 20190819, end: 20191118
  5. AMLODIPINE [Concomitant]
     Active Substance: AMLODIPINE BESYLATE
     Indication: HYPERTENSION
     Dosage: STRENGTH: 5 MG, QD
     Route: 048
     Dates: start: 20120202

REACTIONS (2)
  - Visual impairment [Not Recovered/Not Resolved]
  - Cataract [Not Recovered/Not Resolved]

NARRATIVE: CASE EVENT DATE: 20190901
